FAERS Safety Report 13385099 (Version 1)
Quarter: 2017Q1

REPORT INFORMATION
  Report Type: Spontaneous
  Country: CA (occurrence: CA)
  Receive Date: 20170329
  Receipt Date: 20170329
  Transmission Date: 20170429
  Serious: Yes (Hospitalization)
  Sender: FDA-Public Use
  Company Number: CA-TEVA-753863ACC

PATIENT
  Age: 59 Year
  Sex: Male

DRUGS (2)
  1. BACLOFEN. [Suspect]
     Active Substance: BACLOFEN
     Indication: HICCUPS
  2. BACLOFEN. [Suspect]
     Active Substance: BACLOFEN
     Indication: PAIN IN EXTREMITY
     Dosage: 15 MILLIGRAM DAILY;
     Route: 048

REACTIONS (8)
  - Blood osmolarity decreased [Unknown]
  - Headache [Unknown]
  - Nausea [Unknown]
  - Inappropriate antidiuretic hormone secretion [Unknown]
  - Chest pain [Unknown]
  - Urine osmolarity increased [Unknown]
  - Blood sodium decreased [Unknown]
  - Hyponatraemia [Unknown]
